FAERS Safety Report 11895722 (Version 2)
Quarter: 2016Q1

REPORT INFORMATION
  Report Type: Spontaneous
  Country: TN (occurrence: TN)
  Receive Date: 20160107
  Receipt Date: 20160129
  Transmission Date: 20160526
  Serious: Yes (Death, Other)
  Sender: FDA-Public Use
  Company Number: TN-CELGENE-TUN-2015126381

PATIENT

DRUGS (4)
  1. THALIDOMIDE [Suspect]
     Active Substance: THALIDOMIDE
     Indication: PLASMA CELL MYELOMA
     Route: 048
  2. MELPHALAN [Concomitant]
     Active Substance: MELPHALAN
     Indication: PLASMA CELL MYELOMA
     Route: 065
  3. PREDNISONE. [Concomitant]
     Active Substance: PREDNISONE
     Indication: PLASMA CELL MYELOMA
     Route: 065
  4. THALIDOMIDE [Suspect]
     Active Substance: THALIDOMIDE
     Indication: PLASMA CELL MYELOMA

REACTIONS (12)
  - Embolism [Fatal]
  - Sepsis [Fatal]
  - Cardiovascular disorder [Fatal]
  - Renal impairment [Unknown]
  - Drug ineffective [Unknown]
  - Urinary tract infection [Unknown]
  - Hypercalcaemia [Unknown]
  - Plasma cell myeloma recurrent [Unknown]
  - Pneumonia [Fatal]
  - Arthritis bacterial [Unknown]
  - Anaemia [Unknown]
  - Meningitis [Fatal]
